FAERS Safety Report 6901700-1 (Version None)
Quarter: 2010Q3

REPORT INFORMATION
  Report Type: 
  Country: None (occurrence: None)
  Receive Date: 20100803
  Receipt Date: 20080313
  Transmission Date: 20110219
  Serious: No
  Sender: FDA-Public Use
  Company Number: US-PFIZER INC-2008010770

PATIENT
  Sex: Female
  Weight: 81.19 kg

DRUGS (3)
  1. LYRICA [Suspect]
     Indication: FIBROMYALGIA
     Route: 048
  2. ERYTHROMYCIN [Suspect]
  3. ZANTAC [Suspect]

REACTIONS (2)
  - DYSKINESIA [None]
  - HYPERSENSITIVITY [None]
